FAERS Safety Report 4665707-X (Version None)
Quarter: 2005Q2

REPORT INFORMATION
  Report Type: 
  Country: None (occurrence: None)
  Receive Date: 20050517
  Receipt Date: 20050429
  Transmission Date: 20051028
  Serious: Yes (Hospitalization)
  Sender: FDA-Public Use
  Company Number: USA041082531

PATIENT
  Age: 63 Year
  Sex: Male

DRUGS (11)
  1. FORTEO [Suspect]
     Indication: OSTEOPOROSIS
     Dosage: 20 UG DAY
     Dates: start: 20041016, end: 20041229
  2. PREDNISONE TAB [Concomitant]
  3. LASIX [Concomitant]
  4. MORPHINE [Concomitant]
  5. LORTAB [Concomitant]
  6. PROPYLTHIOURACIL [Concomitant]
  7. PROTONIX [Concomitant]
  8. WARFARIN [Concomitant]
  9. VERAPAMIL [Concomitant]
  10. AVAPRO [Concomitant]
  11. LANOXIN (DIGOXIN -SANDOZ) [Concomitant]

REACTIONS (11)
  - ARRHYTHMIA [None]
  - BLOOD PRESSURE INCREASED [None]
  - HEADACHE [None]
  - HEART RATE INCREASED [None]
  - INJECTION SITE SWELLING [None]
  - NAUSEA [None]
  - OEDEMA PERIPHERAL [None]
  - PAIN [None]
  - RESPIRATORY DISORDER [None]
  - SOMNOLENCE [None]
  - VOMITING [None]
